FAERS Safety Report 5484830-3 (Version None)
Quarter: 2007Q4

REPORT INFORMATION
  Report Type: 
  Country: None (occurrence: None)
  Receive Date: 20071010
  Receipt Date: 20071004
  Transmission Date: 20080405
  Serious: Yes (Death)
  Sender: FDA-Public Use
  Company Number: 167-C5013-07041300

PATIENT
  Age: 71 Year
  Sex: Male
  Weight: 80 kg

DRUGS (8)
  1. CC-5013        (LENALIDOMIDE) [Suspect]
     Indication: MULTIPLE MYELOMA
     Dosage: 25 MG, DAILY, ORAL; 25 MG, DAILY ALTERNATE DAYS, ORAL
     Route: 048
     Dates: start: 20070315, end: 20070322
  2. CC-5013        (LENALIDOMIDE) [Suspect]
     Indication: MULTIPLE MYELOMA
     Dosage: 25 MG, DAILY, ORAL; 25 MG, DAILY ALTERNATE DAYS, ORAL
     Route: 048
     Dates: start: 20070221
  3. DEXAMETHASONE TAB [Suspect]
     Indication: MULTIPLE MYELOMA
     Dates: start: 20070201
  4. ALLOPURINOL [Concomitant]
  5. ASPIRIN [Concomitant]
  6. BENDROFLUMETHIAZIDE                          (BENDROFLUMETHIAZIDE) [Concomitant]
  7. LANSOPRAZOLE [Concomitant]
  8. PAMIDRONATE DISODIUM [Concomitant]

REACTIONS (10)
  - C-REACTIVE PROTEIN INCREASED [None]
  - CARDIAC FAILURE CONGESTIVE [None]
  - HAEMOGLOBIN DECREASED [None]
  - HYPOTENSION [None]
  - MULTIPLE MYELOMA [None]
  - NEUROPATHY PERIPHERAL [None]
  - NEUTROPENIC SEPSIS [None]
  - NO THERAPEUTIC RESPONSE [None]
  - THROMBOCYTOPENIA [None]
  - WHITE BLOOD CELL COUNT DECREASED [None]
